FAERS Safety Report 19909428 (Version 1)
Quarter: 2021Q4

REPORT INFORMATION
  Report Type: Spontaneous
  Country: US (occurrence: US)
  Receive Date: 20211001
  Receipt Date: 20211001
  Transmission Date: 20220303
  Serious: No
  Sender: FDA-Public Use
  Company Number: US-AMARIN PHARMA, INC.-2021AMR000359

PATIENT
  Age: 79 Year
  Sex: Female

DRUGS (4)
  1. VASCEPA [Suspect]
     Active Substance: ICOSAPENT ETHYL
     Indication: Cardiac failure congestive
     Dates: start: 202103
  2. VASCEPA [Suspect]
     Active Substance: ICOSAPENT ETHYL
     Indication: Hypertension
  3. VASCEPA [Suspect]
     Active Substance: ICOSAPENT ETHYL
     Indication: Diabetes mellitus
  4. VASCEPA [Suspect]
     Active Substance: ICOSAPENT ETHYL
     Indication: Chronic obstructive pulmonary disease

REACTIONS (3)
  - Joint swelling [Unknown]
  - Peripheral swelling [Unknown]
  - Off label use [Unknown]
